FAERS Safety Report 5302336-9 (Version None)
Quarter: 2007Q2

REPORT INFORMATION
  Report Type: 
  Country: None (occurrence: None)
  Receive Date: 20070419
  Receipt Date: 20070410
  Transmission Date: 20071010
  Serious: No
  Sender: FDA-Public Use
  Company Number: BE-BAXTER-2007BH003113

PATIENT
  Age: 51 Year
  Sex: Female
  Weight: 67 kg

DRUGS (12)
  1. EXTRANEAL [Suspect]
     Indication: PERITONEAL DIALYSIS
     Route: 033
     Dates: start: 20070222, end: 20070101
  2. EXTRANEAL [Suspect]
     Route: 033
     Dates: start: 20070306
  3. PHYSIONEAL, UNSPECIFIED PRODUCT [Concomitant]
     Route: 033
     Dates: start: 20070306
  4. FUROSEMIDE [Concomitant]
  5. CALCIUM CARBONATE [Concomitant]
  6. ARANESP [Concomitant]
  7. ADCURE [Concomitant]
  8. FORLAX [Concomitant]
  9. INSULIN LENTUS HUMOLOG [Concomitant]
  10. PHYSIONEAL 35 [Concomitant]
     Route: 033
     Dates: start: 20061116
  11. PHYSIONEAL 35 [Concomitant]
     Route: 033
     Dates: start: 20061129
  12. PHYSIONEAL 35 [Concomitant]
     Route: 033
     Dates: start: 20070112

REACTIONS (3)
  - CATHETER RELATED COMPLICATION [None]
  - PERITONITIS BACTERIAL [None]
  - PROCEDURAL COMPLICATION [None]
